FAERS Safety Report 4334497-2 (Version None)
Quarter: 2004Q2

REPORT INFORMATION
  Report Type: 
  Country: None (occurrence: None)
  Receive Date: 20040407
  Receipt Date: 20040122
  Transmission Date: 20050107
  Serious: Yes (Other)
  Sender: FDA-Public Use
  Company Number: NL-GLAXOSMITHKLINE-B0321029A

PATIENT
  Age: 22 Year
  Sex: Female

DRUGS (2)
  1. PAROXETINE HCL [Suspect]
     Indication: OBSESSIVE-COMPULSIVE DISORDER
     Dosage: 20MG PER DAY
     Route: 048
     Dates: start: 20040101
  2. NO CONCURRENT MEDICATION [Concomitant]

REACTIONS (3)
  - FALL [None]
  - MUSCULAR DYSTROPHY [None]
  - THROMBOSIS [None]
